FAERS Safety Report 21120039 (Version 1)
Quarter: 2022Q3

REPORT INFORMATION
  Report Type: Spontaneous
  Country: CN (occurrence: CN)
  Receive Date: 20220722
  Receipt Date: 20220722
  Transmission Date: 20221026
  Serious: Yes (Hospitalization)
  Sender: FDA-Public Use
  Company Number: CN-009507513-2207CHN005124

PATIENT
  Age: 35 Year
  Sex: Male

DRUGS (2)
  1. TEMOZOLOMIDE [Suspect]
     Active Substance: TEMOZOLOMIDE
     Indication: Alveolar soft part sarcoma metastatic
     Dosage: 100 MG ONCE DAILY, D1-5, 28 DAYS/CYCLE
     Route: 048
     Dates: start: 20161118
  2. APATINIB [Suspect]
     Active Substance: APATINIB
     Indication: Alveolar soft part sarcoma metastatic
     Dosage: 500 MG ONCE DAILY
     Route: 048
     Dates: start: 20161118

REACTIONS (4)
  - Diarrhoea [Recovered/Resolved]
  - Secondary hypertension [Recovered/Resolved]
  - Palmar-plantar erythrodysaesthesia syndrome [Recovering/Resolving]
  - Product use in unapproved indication [Unknown]

NARRATIVE: CASE EVENT DATE: 20161118
